FAERS Safety Report 9197338 (Version 1)
Quarter: 2013Q1

REPORT INFORMATION
  Report Type: Spontaneous
  Country: US (occurrence: None)
  Receive Date: 20120709
  Receipt Date: 20120709
  Transmission Date: 20140127
  Serious: No
  Sender: FDA-Public Use
  Company Number: 2012HGS-003373

PATIENT
  Age: 37 Year
  Sex: Female
  Weight: 75.75 kg

DRUGS (3)
  1. BENLYSTA [Suspect]
     Indication: SYSTEMIC LUPUS ERYTHEMATOSUS
     Dosage: 1 IN 28 D
     Route: 041
     Dates: start: 20120305
  2. METHOTREXATE (METHOTREXATE) (METHOTREXATE) [Concomitant]
  3. PLAQUENIL (HYDROXYCHLOROQUINE SULFATE) (HYDROXYCHLOROQUINE SULFATE) [Concomitant]

REACTIONS (10)
  - Fatigue [None]
  - Dizziness [None]
  - Arthralgia [None]
  - Arthralgia [None]
  - Condition aggravated [None]
  - Weight increased [None]
  - Musculoskeletal pain [None]
  - Nausea [None]
  - Somnolence [None]
  - Insomnia [None]
